FAERS Safety Report 6859118-6 (Version None)
Quarter: 2010Q3

REPORT INFORMATION
  Report Type: 
  Country: None (occurrence: None)
  Receive Date: 20100719
  Receipt Date: 20080401
  Transmission Date: 20110219
  Serious: No
  Sender: FDA-Public Use
  Company Number: US-PFIZER INC-2008017026

PATIENT
  Sex: Female
  Weight: 125 kg

DRUGS (2)
  1. CHANTIX [Suspect]
     Indication: SMOKING CESSATION THERAPY
     Route: 048
     Dates: start: 20071201, end: 20080213
  2. ALEVE (CAPLET) [Concomitant]

REACTIONS (2)
  - NIGHTMARE [None]
  - SINUSITIS [None]
